FAERS Safety Report 9439244 (Version 2)
Quarter: 2014Q2

REPORT INFORMATION
  Report Type: Report from Study
  Country: HU (occurrence: HU)
  Receive Date: 20130804
  Receipt Date: 20140620
  Transmission Date: 20141212
  Serious: Yes (Hospitalization)
  Sender: FDA-Public Use
  Company Number: HU-ROCHE-1078349

PATIENT
  Age: 72 Year
  Sex: Female
  Weight: 55 kg

DRUGS (11)
  1. ISONIAZID [Concomitant]
     Indication: PROPHYLAXIS
     Route: 065
  2. METHOTREXATE [Concomitant]
     Indication: RHEUMATOID ARTHRITIS
     Route: 048
     Dates: start: 200905
  3. CLOPIDOGREL [Concomitant]
     Route: 048
  4. THIAMAZOLE [Concomitant]
     Indication: HYPERTHYROIDISM
     Route: 048
     Dates: start: 20120119
  5. METHYLPREDNISOLONE [Concomitant]
     Indication: RHEUMATOID ARTHRITIS
     Route: 065
     Dates: start: 20120120
  6. TOCILIZUMAB [Suspect]
     Indication: RHEUMATOID ARTHRITIS
     Dosage: TOTAL MONTHLY DOSE: 400 MG
     Route: 041
     Dates: start: 20120223
  7. TOCILIZUMAB [Suspect]
     Dosage: TOTAL MONTHLY DOSE: 400 MG
     Route: 041
     Dates: start: 20120322
  8. TOCILIZUMAB [Suspect]
     Dosage: TOTAL MONTHLY DOSE: 400 MG
     Route: 041
     Dates: start: 20120411
  9. TOCILIZUMAB [Suspect]
     Route: 042
     Dates: start: 20120126
  10. ALENDRONIC ACID [Concomitant]
     Indication: OSTEOPETROSIS
     Route: 065
     Dates: start: 2001
  11. PROPRANOLOL [Concomitant]
     Indication: TACHYCARDIA
     Route: 048
     Dates: start: 20120119

REACTIONS (3)
  - Pyelonephritis [Recovered/Resolved]
  - Femur fracture [Recovered/Resolved]
  - Complex regional pain syndrome [Recovered/Resolved]
